FAERS Safety Report 7967241-8 (Version None)
Quarter: 2011Q4

REPORT INFORMATION
  Report Type: 
  Country: None (occurrence: None)
  Receive Date: 20111209
  Receipt Date: 20111202
  Transmission Date: 20120403
  Serious: Yes (Death, Hospitalization)
  Sender: FDA-Public Use
  Company Number: BR-BRISTOL-MYERS SQUIBB COMPANY-16270035

PATIENT
  Age: 85 Year
  Sex: Female
  Weight: 27 kg

DRUGS (5)
  1. VITAMIN B COMPLEX CAP [Concomitant]
  2. CALCIUM + VITAMIN D [Concomitant]
  3. FOLIC ACID [Suspect]
     Indication: THROMBOCYTOSIS
  4. HYDREA [Suspect]
     Indication: THROMBOCYTOSIS
     Dosage: 1DF: 500 MG CAPS.
  5. ASCORBIC ACID [Concomitant]

REACTIONS (2)
  - DEATH [None]
  - FAECALOMA [None]
